FAERS Safety Report 5424700-X (Version None)
Quarter: 2007Q3

REPORT INFORMATION
  Report Type: 
  Country: None (occurrence: None)
  Receive Date: 20070822
  Receipt Date: 20070822
  Transmission Date: 20080115
  Serious: No
  Sender: FDA-Public Use
  Company Number: None

PATIENT
  Sex: Female

DRUGS (2)
  1. CYCLOSPORINE [Suspect]
     Indication: HEART TRANSPLANT
     Dosage: 100MG Q12HR ORAL; 25MG Q12HR ORAL
     Route: 048
     Dates: start: 20050101
  2. CYCLOSPORINE [Suspect]
     Indication: IMMUNOSUPPRESSION
     Dosage: 100MG Q12HR ORAL; 25MG Q12HR ORAL
     Route: 048
     Dates: start: 20050101

REACTIONS (4)
  - DRUG LEVEL BELOW THERAPEUTIC [None]
  - GINGIVAL HYPERPLASIA [None]
  - NAUSEA [None]
  - PHARMACEUTICAL PRODUCT COMPLAINT [None]
